FAERS Safety Report 5714507-8 (Version None)
Quarter: 2008Q2

REPORT INFORMATION
  Report Type: 
  Country: None (occurrence: None)
  Receive Date: 20080423
  Receipt Date: 20080414
  Transmission Date: 20081010
  Serious: Yes (Other)
  Sender: FDA-Public Use
  Company Number: DE-JNJFOC-20080403827

PATIENT
  Age: 53 Year
  Sex: Female

DRUGS (3)
  1. TAVANIC [Suspect]
     Indication: BRONCHITIS
     Route: 048
  2. BECLOMETHASONE DIPROPIONATE [Concomitant]
     Indication: BRONCHITIS
     Route: 055
  3. FORMOTEROL [Concomitant]
     Indication: BRONCHITIS
     Route: 055

REACTIONS (4)
  - ANXIETY [None]
  - DELUSION [None]
  - FATIGUE [None]
  - URTICARIA [None]
